FAERS Safety Report 7564281-8 (Version None)
Quarter: 2011Q2

REPORT INFORMATION
  Report Type: 
  Country: None (occurrence: None)
  Receive Date: 20110622
  Receipt Date: 20110609
  Transmission Date: 20111010
  Serious: Yes (Other)
  Sender: FDA-Public Use
  Company Number: PHHY2010CA34713

PATIENT
  Sex: Male

DRUGS (1)
  1. ZOMETA [Suspect]
     Indication: PROSTATE CANCER
     Dosage: 4 MG, UNK
     Route: 042
     Dates: start: 20100215

REACTIONS (4)
  - RED BLOOD CELL COUNT DECREASED [None]
  - HYPERLIPIDAEMIA [None]
  - BLOOD TESTOSTERONE DECREASED [None]
  - WHITE BLOOD CELL COUNT DECREASED [None]
